FAERS Safety Report 14030737 (Version 3)
Quarter: 2018Q1

REPORT INFORMATION
  Report Type: Spontaneous
  Country: IT (occurrence: IT)
  Receive Date: 20171002
  Receipt Date: 20180201
  Transmission Date: 20180508
  Serious: Yes (Other)
  Sender: FDA-Public Use
  Company Number: IT-ASTRAZENECA-2017SE99232

PATIENT
  Age: 54 Year
  Sex: Female

DRUGS (6)
  1. LYNPARZA [Suspect]
     Active Substance: OLAPARIB
     Route: 048
     Dates: start: 20170927, end: 20170928
  2. MAGNESIUM [Concomitant]
     Active Substance: MAGNESIUM
  3. ALOE VERA [Concomitant]
     Active Substance: ALOE VERA LEAF
  4. MINERALS NOS [Concomitant]
     Active Substance: MINERALS
  5. CURCUMA LONGA [Concomitant]
     Active Substance: HERBALS\TURMERIC
  6. VITAMIN C [Concomitant]
     Active Substance: ASCORBIC ACID

REACTIONS (4)
  - Eye oedema [Not Recovered/Not Resolved]
  - Rash [Recovering/Resolving]
  - Oedema [Recovering/Resolving]
  - Rash erythematous [Recovering/Resolving]

NARRATIVE: CASE EVENT DATE: 20170928
